FAERS Safety Report 20819043 (Version 1)
Quarter: 2022Q2

REPORT INFORMATION
  Report Type: Spontaneous
  Country: US (occurrence: None)
  Receive Date: 20220512
  Receipt Date: 20220512
  Transmission Date: 20220721
  Serious: No
  Sender: FDA-Public Use
  Company Number: 2022A021832

PATIENT
  Age: 26283 Day

DRUGS (1)
  1. PULMICORT FLEXHALER [Suspect]
     Active Substance: BUDESONIDE
     Route: 055

REACTIONS (3)
  - Feeling abnormal [Unknown]
  - Incorrect dose administered by device [Unknown]
  - Device use confusion [Unknown]

NARRATIVE: CASE EVENT DATE: 20220112
